FAERS Safety Report 19970463 (Version 1)
Quarter: 2021Q4

REPORT INFORMATION
  Report Type: Spontaneous
  Country: SE (occurrence: SE)
  Receive Date: 20211019
  Receipt Date: 20211019
  Transmission Date: 20220304
  Serious: Yes (Hospitalization)
  Sender: FDA-Public Use
  Company Number: None

PATIENT
  Age: 87 Year
  Sex: Female

DRUGS (9)
  1. RIVASTIGMINE [Suspect]
     Active Substance: RIVASTIGMINE
     Indication: Product used for unknown indication
     Dosage: 6 MG, QD, KAPSLAR
     Route: 065
     Dates: end: 202106
  2. DENTAN MINT [Concomitant]
     Indication: Product used for unknown indication
     Dosage: 2 ML, QD, MUNSK?LJV?TSKA
     Route: 065
     Dates: start: 20210108
  3. BUPRENORPHINE [Concomitant]
     Active Substance: BUPRENORPHINE
     Indication: Product used for unknown indication
     Dosage: 1 DF, QW, DEPOTPL?STER, 1 PL?STER/VECKA
     Route: 065
     Dates: start: 20210108
  4. NITROLINGUAL [Concomitant]
     Active Substance: NITROGLYCERIN
     Indication: Product used for unknown indication
     Dosage: 1 DF, PRN, 1-2 DOSER VB, 0.4 MG/DOS
     Route: 065
     Dates: start: 20191018
  5. ACETAMINOPHEN [Concomitant]
     Active Substance: ACETAMINOPHEN
     Indication: Product used for unknown indication
     Dosage: 1 DF, PRN, 1-2 VB, H?GST 6/DYGN
     Route: 065
     Dates: start: 20171102
  6. BENSERAZIDE HYDROCHLORIDE\LEVODOPA [Concomitant]
     Active Substance: BENSERAZIDE HYDROCHLORIDE\LEVODOPA
     Indication: Product used for unknown indication
     Dosage: 1 DF, QD
     Route: 065
     Dates: start: 20171102
  7. LACTULOSE [Concomitant]
     Active Substance: LACTULOSE
     Indication: Product used for unknown indication
     Dosage: 20 ML, QD, ORAL L?SNING
     Route: 065
     Dates: start: 20200117
  8. SODIUM PICOSULFATE [Concomitant]
     Active Substance: SODIUM PICOSULFATE
     Indication: Product used for unknown indication
     Dosage: 1 DF, PRN, ORALA DROPPAR, L?SNING, 10-30 DROPPAR VB
     Route: 065
     Dates: start: 20210109
  9. ELIQUIS [Concomitant]
     Active Substance: APIXABAN
     Indication: Product used for unknown indication
     Dosage: 5 MG, QD
     Route: 065
     Dates: start: 20181206

REACTIONS (1)
  - Depressed level of consciousness [Recovering/Resolving]

NARRATIVE: CASE EVENT DATE: 20210601
